FAERS Safety Report 6396171-0 (Version None)
Quarter: 2009Q4

REPORT INFORMATION
  Report Type: 
  Country: None (occurrence: None)
  Receive Date: 20091009
  Receipt Date: 20091002
  Transmission Date: 20100525
  Serious: Yes (Other)
  Sender: FDA-Public Use
  Company Number: CA-B.I. PHARMACEUTICALS,INC./RIDGEFIELD-2009-DE-06349GD

PATIENT
  Sex: Female

DRUGS (3)
  1. NEVIRAPINE [Suspect]
     Indication: HIV INFECTION
  2. STAVUDINE [Suspect]
     Indication: HIV INFECTION
  3. ABACAVIR [Suspect]
     Indication: HIV INFECTION

REACTIONS (2)
  - CAESAREAN SECTION [None]
  - OLIGOHYDRAMNIOS [None]
